FAERS Safety Report 15640520 (Version 4)
Quarter: 2019Q1

REPORT INFORMATION
  Report Type: Spontaneous
  Country: CH (occurrence: CH)
  Receive Date: 20181120
  Receipt Date: 20190204
  Transmission Date: 20190417
  Serious: Yes (Other)
  Sender: FDA-Public Use
  Company Number: CH-GILEAD-2018-0374676

PATIENT
  Age: 56 Year
  Sex: Male
  Weight: 104 kg

DRUGS (6)
  1. HARVONI [Suspect]
     Active Substance: LEDIPASVIR\SOFOSBUVIR
     Indication: CHRONIC HEPATITIS C
     Dosage: UNK
     Route: 048
     Dates: start: 201509, end: 201603
  2. MOVICOL [Suspect]
     Active Substance: POLYETHYLENE GLYCOL 3350\POTASSIUM CHLORIDE\SODIUM BICARBONATE\SODIUM CHLORIDE
  3. JANUVIA [Concomitant]
     Active Substance: SITAGLIPTIN PHOSPHATE
     Dosage: 100 MG
  4. VITAMIN D [Concomitant]
     Active Substance: CHOLECALCIFEROL
     Dosage: UNK
     Route: 048
     Dates: start: 201607, end: 201701
  5. KETALGIN [METHADONE HYDROCHLORIDE] [Concomitant]
  6. LEVEMIR [Concomitant]
     Active Substance: INSULIN DETEMIR

REACTIONS (5)
  - Hepatitis C [Not Recovered/Not Resolved]
  - Genotype drug resistance test positive [Unknown]
  - Transaminases increased [Unknown]
  - Fatigue [Not Recovered/Not Resolved]
  - Drug ineffective [Not Recovered/Not Resolved]

NARRATIVE: CASE EVENT DATE: 201806
